FAERS Safety Report 5467713-4 (Version None)
Quarter: 2007Q3

REPORT INFORMATION
  Report Type: 
  Country: None (occurrence: None)
  Receive Date: 20070921
  Receipt Date: 20070910
  Transmission Date: 20080115
  Serious: Yes (Disabling)
  Sender: FDA-Public Use
  Company Number: CHNY2007FR03135

PATIENT
  Age: 7 Year
  Sex: Male

DRUGS (1)
  1. HYOSCINE HBR HYT [Suspect]
     Indication: MOTION SICKNESS
     Dosage: 0.5DF, TWICE, TRANSDERMAL
     Route: 062

REACTIONS (3)
  - ANXIETY [None]
  - HYPOACUSIS [None]
  - WRONG TECHNIQUE IN DRUG USAGE PROCESS [None]
